FAERS Safety Report 11920359 (Version 1)
Quarter: 2016Q1

REPORT INFORMATION
  Report Type: Spontaneous
  Country: GB (occurrence: GB)
  Receive Date: 20160115
  Receipt Date: 20160115
  Transmission Date: 20160526
  Serious: Yes (Hospitalization, Disabling, Other)
  Sender: FDA-Public Use
  Company Number: PHHY2016GB001016

PATIENT
  Age: 66 Year
  Sex: Male
  Weight: 75.29 kg

DRUGS (1)
  1. ITRACONAZOLE. [Suspect]
     Active Substance: ITRACONAZOLE
     Indication: ONYCHOMYCOSIS
     Dosage: 200 MG, QD
     Route: 048
     Dates: start: 20150408, end: 20150509

REACTIONS (5)
  - Guillain-Barre syndrome [Recovering/Resolving]
  - Influenza like illness [Recovering/Resolving]
  - Back pain [Unknown]
  - Muscular weakness [Unknown]
  - Pain in extremity [Unknown]

NARRATIVE: CASE EVENT DATE: 20150509
